FAERS Safety Report 18940237 (Version 1)
Quarter: 2021Q1

REPORT INFORMATION
  Report Type: Spontaneous
  Country: US (occurrence: US)
  Receive Date: 20210225
  Receipt Date: 20210225
  Transmission Date: 20210420
  Serious: Yes (Other)
  Sender: FDA-Public Use
  Company Number: US-MYLANLABS-2021M1011134

PATIENT
  Age: 63 Year
  Sex: Female

DRUGS (1)
  1. HYDRALAZINE [Suspect]
     Active Substance: HYDRALAZINE HYDROCHLORIDE
     Indication: HYPERTENSION
     Dosage: 250 MILLIGRAM
     Route: 065

REACTIONS (3)
  - Glomerulonephritis rapidly progressive [Unknown]
  - Renal tubular injury [Unknown]
  - Anti-neutrophil cytoplasmic antibody positive vasculitis [Unknown]
